FAERS Safety Report 5236594-6 (Version None)
Quarter: 2007Q1

REPORT INFORMATION
  Report Type: 
  Country: None (occurrence: None)
  Receive Date: 20070208
  Receipt Date: 20070131
  Transmission Date: 20070707
  Serious: Yes (Hospitalization)
  Sender: FDA-Public Use
  Company Number: 2007SP001991

PATIENT
  Age: 51 Year
  Sex: Female

DRUGS (2)
  1. PEG-INTRON [Suspect]
     Indication: HEPATITIS C
     Dosage: SC
     Route: 058
     Dates: start: 20061129
  2. RIBAVIRIN [Suspect]
     Indication: HEPATITIS C
     Dosage: PO
     Route: 048
     Dates: start: 20061129

REACTIONS (7)
  - ASTHENIA [None]
  - BACK PAIN [None]
  - DIVERTICULITIS [None]
  - DYSPNOEA [None]
  - LUNG NEOPLASM [None]
  - MUSCLE SPASMS [None]
  - PAIN [None]
